FAERS Safety Report 10487771 (Version 2)
Quarter: 2014Q4

REPORT INFORMATION
  Report Type: Spontaneous
  Country: ES (occurrence: ES)
  Receive Date: 20141001
  Receipt Date: 20141202
  Transmission Date: 20150528
  Serious: Yes (Life-Threatening, Hospitalization, Other)
  Sender: FDA-Public Use
  Company Number: ES-BAUSCH-BL-2014-006051

PATIENT
  Age: 7 Year
  Sex: Male

DRUGS (3)
  1. TIMOLOL MALEATE. [Suspect]
     Active Substance: TIMOLOL MALEATE
     Indication: DEVELOPMENTAL GLAUCOMA
     Route: 047
     Dates: start: 20130214, end: 20130214
  2. ALBUTEROL. [Concomitant]
     Active Substance: ALBUTEROL
     Indication: PRODUCT USED FOR UNKNOWN INDICATION
  3. TIMOLOL MALEATE. [Suspect]
     Active Substance: TIMOLOL MALEATE
     Route: 047
     Dates: start: 201211, end: 201301

REACTIONS (4)
  - Asthma [Recovered/Resolved]
  - Loss of consciousness [Recovered/Resolved]
  - Bronchospasm [Recovered/Resolved]
  - Resuscitation [Recovered/Resolved]
